FAERS Safety Report 10298384 (Version 3)
Quarter: 2015Q4

REPORT INFORMATION
  Report Type: Report from Study
  Country: JP (occurrence: JP)
  Receive Date: 20140711
  Receipt Date: 20151104
  Transmission Date: 20160304
  Serious: Yes (Death, Hospitalization)
  Sender: FDA-Public Use
  Company Number: JP-PFIZER INC-2014189765

PATIENT
  Age: 64 Year
  Sex: Female
  Weight: 36.6 kg

DRUGS (41)
  1. ASTOMIN [Concomitant]
     Active Substance: DIMEMORFAN
     Dosage: 10 MG, 2X/DAY
     Route: 048
  2. CODEINE PHOSPHATE [Concomitant]
     Active Substance: CODEINE PHOSPHATE
     Dosage: 4 G, 2X/DAY
     Route: 048
     Dates: start: 20120925
  3. EKSALB [Concomitant]
     Dosage: UNK
     Dates: start: 20121003
  4. RISPERDAL [Concomitant]
     Active Substance: RISPERIDONE
     Dosage: 0.5 ML, AS NEEDED
     Route: 048
     Dates: start: 20121005
  5. AMIKACIN SULFATE. [Concomitant]
     Active Substance: AMIKACIN SULFATE
     Dosage: 100 MG, 1X/DAY
     Dates: start: 20121012, end: 20121017
  6. GASMOTIN [Concomitant]
     Active Substance: MOSAPRIDE CITRATE
     Dosage: 5 MG, 3X/DAY
     Route: 048
  7. TELEMINSOFT [Concomitant]
     Dosage: UNK
     Route: 054
     Dates: start: 20120924
  8. MEVALOTIN [Concomitant]
     Active Substance: PRAVASTATIN SODIUM
     Dosage: 5 MG, 1X/DAY
     Route: 048
     Dates: start: 20120925
  9. NORMAL SALINE [Concomitant]
     Active Substance: SODIUM CHLORIDE
     Dosage: 50 ML, 2X/DAY
     Dates: start: 20120916, end: 20121019
  10. NORMAL SALINE [Concomitant]
     Active Substance: SODIUM CHLORIDE
     Dosage: 10 ML, 1X/DAY
     Dates: start: 20121003, end: 20121026
  11. FOY [Concomitant]
     Active Substance: GABEXATE MESYLATE
     Dosage: 100 MG, 1X/DAY
     Dates: start: 20121024, end: 20121026
  12. NORMAL SALINE [Concomitant]
     Active Substance: SODIUM CHLORIDE
     Dosage: UNK
     Route: 061
     Dates: start: 20121005
  13. WHITE PETROLATUM [Concomitant]
     Active Substance: PETROLATUM
     Dosage: UNK
     Route: 061
     Dates: start: 20121006
  14. GLYCEREB [Concomitant]
     Dosage: 200 ML, 1X/DAY
     Dates: start: 20121003, end: 20121023
  15. NEOLAMIN 3B INJ. [Concomitant]
     Dosage: 10 ML, 1X/DAY
     Dates: start: 20121023, end: 20121026
  16. PANTOSIN [Concomitant]
     Active Substance: PANTETHINE
     Dosage: 100 MG, 3X/DAY
     Route: 048
  17. MAGMITT [Concomitant]
     Active Substance: MAGNESIUM OXIDE
     Dosage: 330 MG, 3X/DAY
     Route: 048
  18. DECADRON [Concomitant]
     Active Substance: DEXAMETHASONE
     Dosage: 1 MG, 2X/DAY
     Route: 048
     Dates: start: 20120916
  19. AMLODIN OD [Concomitant]
     Active Substance: AMLODIPINE BESYLATE
     Dosage: 5 MG, 1X/DAY
     Route: 048
     Dates: start: 20120925
  20. XALKORI [Suspect]
     Active Substance: CRIZOTINIB
     Indication: NON-SMALL CELL LUNG CANCER
     Dosage: 250 MG, 2X/DAY
     Route: 048
     Dates: start: 20120915, end: 20121008
  21. GASTER [Concomitant]
     Active Substance: FAMOTIDINE
     Dosage: 20 MG, 2X/DAY
     Dates: start: 20121005, end: 20121026
  22. NOVOLIN R [Concomitant]
     Active Substance: INSULIN HUMAN
     Dosage: 100 MG, 1X/DAY
     Dates: start: 20121023, end: 20121024
  23. GLUCOSE [Concomitant]
     Active Substance: DEXTROSE
     Dosage: 500 ML, 1X/DAY
     Dates: start: 20121025, end: 20121026
  24. NOVAMIN [Concomitant]
     Active Substance: PROCHLORPERAZINE MALEATE
     Dosage: 5 MG, 3X/DAY
     Route: 048
     Dates: start: 20120916
  25. PRIMPERAN [Concomitant]
     Active Substance: METOCLOPRAMIDE HYDROCHLORIDE
     Dosage: 5 MG, AS NEEDED
     Route: 048
     Dates: start: 20120916
  26. HIRUDOID [Concomitant]
     Active Substance: GLYCOSAMINOGLYCANS
     Dosage: UNK
     Route: 061
     Dates: start: 20121003
  27. NASEA OD [Concomitant]
     Dosage: 0.1 MG, 1X/DAY
     Route: 048
     Dates: start: 20121005
  28. HACHIAZULE [Concomitant]
     Dosage: UNK
     Route: 049
     Dates: start: 20121019
  29. GLUCOSE [Concomitant]
     Active Substance: DEXTROSE
     Dosage: 250 ML, 1X/DAY
     Dates: start: 20121010, end: 20121026
  30. SERENACE [Concomitant]
     Active Substance: HALOPERIDOL
     Dosage: 5 MG, 2X/DAY
     Dates: start: 20121015, end: 20121019
  31. BAYASPIRIN [Concomitant]
     Active Substance: ASPIRIN
     Dosage: 100 MG, 1X/DAY
     Route: 048
     Dates: start: 20120916
  32. SOLANAX [Concomitant]
     Active Substance: ALPRAZOLAM
     Dosage: 0.4 MG, 3X/DAY
     Route: 048
     Dates: start: 20120916
  33. LOXOPROFEN [Concomitant]
     Active Substance: LOXOPROFEN
     Dosage: 60 MG, 3X/DAY
     Route: 048
     Dates: start: 20120925
  34. ASPARA POTASSIUM [Concomitant]
     Active Substance: POTASSIUM ASPARTATE
     Dosage: 10 ML, 1X/DAY
     Dates: start: 20121012, end: 20121026
  35. SULBACILLIN [Concomitant]
     Active Substance: AMPICILLIN SODIUM\SULBACTAM SODIUM
     Dosage: 1.5 G, 2X/DAY
     Route: 042
     Dates: start: 20121018, end: 20121024
  36. ELEMENMIC [Concomitant]
     Active Substance: CUPRIC SULFATE\FERRIC CHLORIDE\MANGANESE CHLORIDE\POTASSIUM IODIDE\ZINC SULFATE
     Dosage: 2 ML, 1X/DAY
     Dates: start: 20121023, end: 20121026
  37. PARIET [Concomitant]
     Active Substance: RABEPRAZOLE SODIUM
     Dosage: 10 MG, 1X/DAY
     Route: 048
     Dates: start: 20120921
  38. DEXART [Concomitant]
     Active Substance: DEXAMETHASONE SODIUM PHOSPHATE
     Dosage: 6.6 MG, 2X/DAY
     Dates: start: 20120916, end: 20121026
  39. MEROPEN [Concomitant]
     Active Substance: MEROPENEM
     Dosage: 0.5 G, 3X/DAY
     Dates: start: 20121012, end: 20121017
  40. RADICUT [Concomitant]
     Active Substance: EDARAVONE
     Dosage: 30 MG, 2X/DAY
     Route: 042
     Dates: start: 20121013, end: 20121019
  41. MAXIPIME [Concomitant]
     Active Substance: CEFEPIME HYDROCHLORIDE
     Dosage: 1 G, 3X/DAY
     Dates: start: 20121025, end: 20121026

REACTIONS (3)
  - Non-small cell lung cancer [Fatal]
  - Depressed level of consciousness [Not Recovered/Not Resolved]
  - Disease progression [Fatal]

NARRATIVE: CASE EVENT DATE: 20121003
